FAERS Safety Report 8541478-1 (Version None)
Quarter: 2012Q3

REPORT INFORMATION
  Report Type: 
  Country: None (occurrence: None)
  Receive Date: 20120726
  Receipt Date: 20120720
  Transmission Date: 20120928
  Serious: Yes (Death)
  Sender: FDA-Public Use
  Company Number: US-ELI_LILLY_AND_COMPANY-US201207006783

PATIENT
  Sex: Male

DRUGS (2)
  1. ILETIN [Concomitant]
     Indication: DIABETES MELLITUS
     Dosage: UNK, UNKNOWN
  2. HUMULIN N [Suspect]
     Indication: DIABETES MELLITUS

REACTIONS (1)
  - DEATH [None]
